FAERS Safety Report 6533932-9 (Version None)
Quarter: 2010Q1

REPORT INFORMATION
  Report Type: 
  Country: None (occurrence: None)
  Receive Date: 20100112
  Receipt Date: 20100107
  Transmission Date: 20100710
  Serious: Yes (Hospitalization, Other)
  Sender: FDA-Public Use
  Company Number: US-ASTRAZENECA-2007UW06019

PATIENT
  Age: 14713 Day
  Sex: Male
  Weight: 137 kg

DRUGS (17)
  1. SEROQUEL [Suspect]
     Indication: DEPRESSION
     Dosage: 25MG-200MG
     Route: 048
     Dates: start: 19990101, end: 20090301
  2. SEROQUEL [Suspect]
     Indication: SCHIZOPHRENIA
     Dosage: 25MG-200MG
     Route: 048
     Dates: start: 19990101, end: 20090301
  3. SEROQUEL [Suspect]
     Indication: HALLUCINATION, AUDITORY
     Dosage: 25MG-200MG
     Route: 048
     Dates: start: 19990101, end: 20090301
  4. SEROQUEL [Suspect]
     Route: 048
     Dates: start: 20000701
  5. SEROQUEL [Suspect]
     Route: 048
     Dates: start: 20000701
  6. SEROQUEL [Suspect]
     Route: 048
     Dates: start: 20000701
  7. SEROQUEL [Suspect]
     Route: 048
     Dates: start: 20011122
  8. SEROQUEL [Suspect]
     Route: 048
     Dates: start: 20011122
  9. SEROQUEL [Suspect]
     Route: 048
     Dates: start: 20011122
  10. RISPERDAL [Suspect]
     Dates: start: 19990401, end: 20030801
  11. DEPAKOTE [Concomitant]
     Route: 048
     Dates: start: 20011122
  12. ATENOLOL [Concomitant]
     Route: 048
     Dates: start: 20000605
  13. LIPITOR [Concomitant]
     Route: 048
     Dates: start: 20011122
  14. WELLBUTRIN [Concomitant]
     Route: 048
     Dates: start: 20060120
  15. AVANDIA [Concomitant]
     Route: 048
     Dates: start: 20060120
  16. HALDOL [Concomitant]
  17. REMERON [Concomitant]

REACTIONS (10)
  - BLOOD CHOLESTEROL INCREASED [None]
  - BLOOD GLUCOSE INCREASED [None]
  - DIABETES MELLITUS [None]
  - DIABETES MELLITUS INADEQUATE CONTROL [None]
  - DIABETIC KETOACIDOSIS [None]
  - DIABETIC NEPHROPATHY [None]
  - DIABETIC NEUROPATHY [None]
  - HYPERLIPIDAEMIA [None]
  - NEUROPATHY PERIPHERAL [None]
  - TYPE 2 DIABETES MELLITUS [None]
